FAERS Safety Report 18499085 (Version 2)
Quarter: 2021Q1

REPORT INFORMATION
  Report Type: Spontaneous
  Country: US (occurrence: US)
  Receive Date: 20201112
  Receipt Date: 20210121
  Transmission Date: 20210419
  Serious: Yes (Other)
  Sender: FDA-Public Use
  Company Number: US-TEVA-2020-US-1846358

PATIENT
  Age: 73 Year
  Sex: Female

DRUGS (2)
  1. DOXYCYCLINE. [Suspect]
     Active Substance: DOXYCYCLINE
     Indication: DERMATITIS ACNEIFORM
     Route: 065
  2. ERLOTINIB [Suspect]
     Active Substance: ERLOTINIB
     Indication: NON-SMALL CELL LUNG CANCER METASTATIC
     Route: 065

REACTIONS (11)
  - Hair disorder [Unknown]
  - Rash [Unknown]
  - Rash pustular [Unknown]
  - Hypersensitivity vasculitis [Recovered/Resolved]
  - Naevoid melanoma [Unknown]
  - Melanocytic naevus [Unknown]
  - Pruritus [Unknown]
  - Paronychia [Unknown]
  - Dermatitis acneiform [Unknown]
  - Gastrointestinal disorder [Unknown]
  - Xerosis [Unknown]
